FAERS Safety Report 5648101-4 (Version None)
Quarter: 2008Q1

REPORT INFORMATION
  Report Type: 
  Country: None (occurrence: None)
  Receive Date: 20080229
  Receipt Date: 20080121
  Transmission Date: 20080703
  Serious: Yes (Death, Other)
  Sender: FDA-Public Use
  Company Number: 2007SP023483

PATIENT
  Sex: Male

DRUGS (1)
  1. TEMODAL [Suspect]
     Dosage: 250 MG
     Dates: start: 20070301, end: 20071001

REACTIONS (11)
  - DEMENTIA ALZHEIMER'S TYPE [None]
  - DYSGRAPHIA [None]
  - DYSPHAGIA [None]
  - EJACULATION FAILURE [None]
  - ERECTILE DYSFUNCTION [None]
  - GAIT DISTURBANCE [None]
  - HEADACHE [None]
  - HEARING IMPAIRED [None]
  - MALIGNANT NEOPLASM PROGRESSION [None]
  - MOTOR DYSFUNCTION [None]
  - VISION BLURRED [None]
